FAERS Safety Report 18043994 (Version 1)
Quarter: 2020Q3

REPORT INFORMATION
  Report Type: Spontaneous
  Country: US (occurrence: US)
  Receive Date: 20200719
  Receipt Date: 20200719
  Transmission Date: 20201103
  Serious: Yes (Other)
  Sender: FDA-Public Use
  Company Number: None

PATIENT
  Age: 24 Year
  Sex: Female
  Weight: 74.7 kg

DRUGS (1)
  1. ETONOGESTREL/ETHINYL ESTRADIOL [Suspect]
     Active Substance: ETHINYL ESTRADIOL\ETONOGESTREL
     Dosage: ?          OTHER FREQUENCY:EVERY 4 WEEKS;?
     Route: 067

REACTIONS (5)
  - Menorrhagia [None]
  - Condition aggravated [None]
  - Muscle spasms [None]
  - Product substitution issue [None]
  - Irritability [None]

NARRATIVE: CASE EVENT DATE: 20200701
